FAERS Safety Report 4980937-5 (Version None)
Quarter: 2006Q2

REPORT INFORMATION
  Report Type: 
  Country: None (occurrence: None)
  Receive Date: 20060424
  Receipt Date: 20051013
  Transmission Date: 20061013
  Serious: Yes (Hospitalization, Other)
  Sender: FDA-Public Use
  Company Number: PR-MERCK-0510USA07177

PATIENT
  Age: 69 Year
  Sex: Female
  Weight: 88 kg

DRUGS (3)
  1. VIOXX [Suspect]
     Indication: ARTHRALGIA
     Route: 048
     Dates: start: 20000101, end: 20040901
  2. CELEBREX [Concomitant]
     Route: 065
     Dates: start: 20010101
  3. KENALOG [Concomitant]
     Indication: GINGIVAL DISORDER
     Route: 065
     Dates: start: 20010501, end: 20030926

REACTIONS (19)
  - ARTHROPATHY [None]
  - BLOOD PRESSURE INADEQUATELY CONTROLLED [None]
  - CEREBROVASCULAR ACCIDENT [None]
  - CHEST PAIN [None]
  - CONVULSION [None]
  - DIABETES MELLITUS [None]
  - DIARRHOEA [None]
  - DYSPNOEA [None]
  - GOUT [None]
  - HAEMATOCHEZIA [None]
  - HEART RATE IRREGULAR [None]
  - HERNIA [None]
  - HYPERTENSION [None]
  - ISCHAEMIC STROKE [None]
  - OEDEMA PERIPHERAL [None]
  - OSTEOARTHRITIS [None]
  - RHEUMATOID ARTHRITIS [None]
  - SLEEP APNOEA SYNDROME [None]
  - VOMITING [None]
